FAERS Safety Report 4745496-0 (Version None)
Quarter: 2005Q3

REPORT INFORMATION
  Report Type: 
  Country: None (occurrence: None)
  Receive Date: 20050815
  Receipt Date: 20050511
  Transmission Date: 20060218
  Serious: Yes (Hospitalization)
  Sender: FDA-Public Use
  Company Number: US-MERCK-0505USA01651

PATIENT
  Age: 54 Year
  Sex: Male
  Weight: 98 kg

DRUGS (7)
  1. FLUOCINONIDE [Concomitant]
     Indication: SKIN EXFOLIATION
     Route: 065
  2. VIAGRA [Concomitant]
     Indication: ERECTILE DYSFUNCTION
     Route: 065
  3. LEVITRA [Concomitant]
     Indication: ERECTILE DYSFUNCTION
     Route: 065
  4. VIOXX [Suspect]
     Indication: BACK PAIN
     Route: 048
     Dates: start: 20000601, end: 20021201
  5. CHLORHEXIDINE HYDROCHLORIDE [Concomitant]
     Route: 065
  6. PERIOSTAT [Concomitant]
     Indication: DENTAL CARE
     Route: 065
  7. CEPHALEXIN [Concomitant]
     Indication: DENTAL CARE
     Route: 065

REACTIONS (4)
  - ABDOMINAL HERNIA OBSTRUCTIVE [None]
  - BLOOD CHOLESTEROL INCREASED [None]
  - CARDIAC DISORDER [None]
  - MYOCARDIAL INFARCTION [None]
